FAERS Safety Report 7383109-2 (Version None)
Quarter: 2011Q1

REPORT INFORMATION
  Report Type: 
  Country: None (occurrence: None)
  Receive Date: 20110330
  Receipt Date: 20110325
  Transmission Date: 20110831
  Serious: Yes (Death)
  Sender: FDA-Public Use
  Company Number: US-ASTELLAS-2011US001206

PATIENT
  Sex: Female

DRUGS (1)
  1. MYCAMINE [Suspect]
     Indication: PRODUCT USED FOR UNKNOWN INDICATION
     Dosage: 100 MG, UID/QD
     Route: 042
     Dates: start: 20100708, end: 20100714

REACTIONS (1)
  - DEATH [None]
